FAERS Safety Report 15776994 (Version 1)
Quarter: 2018Q4

REPORT INFORMATION
  Report Type: Spontaneous
  Country: US (occurrence: US)
  Receive Date: 20181229
  Receipt Date: 20181229
  Transmission Date: 20190205
  Serious: No
  Sender: FDA-Public Use
  Company Number: None

PATIENT
  Age: 36 Year
  Sex: Female
  Weight: 67.5 kg

DRUGS (4)
  1. MAGNESIUM [Concomitant]
     Active Substance: MAGNESIUM
  2. AIMOVIG [Suspect]
     Active Substance: ERENUMAB-AOOE
  3. TIZANIDIN [Concomitant]
     Active Substance: TIZANIDINE HYDROCHLORIDE
  4. PERCOCET [Concomitant]
     Active Substance: ACETAMINOPHEN\OXYCODONE HYDROCHLORIDE

REACTIONS (14)
  - Muscle spasms [None]
  - Diplopia [None]
  - Condition aggravated [None]
  - Hypophagia [None]
  - Tremor [None]
  - Dizziness [None]
  - Migraine [None]
  - Vomiting [None]
  - Cold sweat [None]
  - Bedridden [None]
  - Nausea [None]
  - Dehydration [None]
  - Dysgeusia [None]
  - Impaired driving ability [None]

NARRATIVE: CASE EVENT DATE: 20181204
